FAERS Safety Report 16034815 (Version 1)
Quarter: 2019Q1

REPORT INFORMATION
  Report Type: Spontaneous
  Country: US (occurrence: US)
  Receive Date: 20190305
  Receipt Date: 20190305
  Transmission Date: 20190418
  Serious: Yes (Hospitalization, Other)
  Sender: FDA-Public Use
  Company Number: US-AUROBINDO-AUR-APL-2019-010707

PATIENT

DRUGS (3)
  1. DEXAMETHASONE. [Suspect]
     Active Substance: DEXAMETHASONE
     Dosage: UNK
     Route: 048
  2. DEXAMETHASONE. [Suspect]
     Active Substance: DEXAMETHASONE
     Indication: NEUROTOXICITY
     Dosage: 10 MILLIGRAM, FOUR TIMES/DAY
     Route: 042
  3. DEXAMETHASONE. [Suspect]
     Active Substance: DEXAMETHASONE
     Indication: NEUROTOXICITY
     Dosage: UNK
     Route: 048

REACTIONS (10)
  - Psychotic disorder [Unknown]
  - Depression [Unknown]
  - Myopathy [Unknown]
  - Failure to thrive [Unknown]
  - Suicidal ideation [Recovered/Resolved]
  - Anhedonia [Recovering/Resolving]
  - Paranoia [Unknown]
  - Asthenia [Unknown]
  - Personality change [Unknown]
  - Abulia [Unknown]
